FAERS Safety Report 7085882-X (Version None)
Quarter: 2010Q4

REPORT INFORMATION
  Report Type: 
  Country: None (occurrence: None)
  Receive Date: 20101105
  Receipt Date: 20101026
  Transmission Date: 20110411
  Serious: Yes (Other)
  Sender: FDA-Public Use
  Company Number: DE-ROCHE-738134

PATIENT
  Sex: Female

DRUGS (3)
  1. CELLCEPT [Suspect]
     Indication: RENAL TRANSPLANT
  2. AZATHIOPRIN [Concomitant]
     Indication: RENAL TRANSPLANT
  3. TACROLIMUS [Concomitant]
     Indication: RENAL TRANSPLANT

REACTIONS (2)
  - CONGENITAL EYE DISORDER [None]
  - MICROTIA [None]
